FAERS Safety Report 7068769-8 (Version None)
Quarter: 2010Q4

REPORT INFORMATION
  Report Type: 
  Country: None (occurrence: None)
  Receive Date: 20101028
  Receipt Date: 20101018
  Transmission Date: 20110411
  Serious: Yes (Other)
  Sender: FDA-Public Use
  Company Number: IT-BAYER-201042976GPV

PATIENT
  Sex: Male

DRUGS (2)
  1. NEXAVAR [Suspect]
     Indication: PRODUCT USED FOR UNKNOWN INDICATION
     Route: 048
  2. NEXAVAR [Suspect]
     Dosage: HALF DOSAGE
     Route: 048

REACTIONS (2)
  - BALANOPOSTHITIS [None]
  - HAEMORRHAGIC DISORDER [None]
